FAERS Safety Report 5742783-4 (Version None)
Quarter: 2008Q2

REPORT INFORMATION
  Report Type: 
  Country: None (occurrence: None)
  Receive Date: 20080519
  Receipt Date: 20080512
  Transmission Date: 20081010
  Serious: Yes (Congenital Anomaly, Other)
  Sender: FDA-Public Use
  Company Number: US-MERCK-0805USA03014

PATIENT
  Age: 0 Day
  Sex: Female
  Weight: 2 kg

DRUGS (1)
  1. SINGULAIR [Suspect]
     Indication: ASTHMA
     Route: 064
     Dates: start: 20040101

REACTIONS (4)
  - FOETAL ALCOHOL SYNDROME [None]
  - PREMATURE BABY [None]
  - SMALL FOR DATES BABY [None]
  - TRISOMY 21 [None]
